FAERS Safety Report 5642698-6 (Version None)
Quarter: 2008Q1

REPORT INFORMATION
  Report Type: 
  Country: None (occurrence: None)
  Receive Date: 20080131
  Receipt Date: 20071116
  Transmission Date: 20080703
  Serious: Yes (Other)
  Sender: FDA-Public Use
  Company Number: PHEH2007US15019

PATIENT
  Age: 50 Year
  Sex: Female

DRUGS (2)
  1. TEKTURNA [Suspect]
     Indication: HYPERTENSION
     Dosage: 300 MG,
  2. DIOVAN [Suspect]
     Dosage: 320 MG,; 150 MG, QD

REACTIONS (1)
  - HYPOTENSION [None]
